FAERS Safety Report 8851254 (Version 1)
Quarter: 2012Q4

REPORT INFORMATION
  Report Type: 
  Country: CO (occurrence: CO)
  Receive Date: 20121019
  Receipt Date: 20121019
  Transmission Date: 20130627
  Serious: Yes (Other)
  Sender: FDA-Public Use
  Company Number: CO-PFIZER INC-2012260366

PATIENT
  Age: 49 Year
  Sex: Male

DRUGS (8)
  1. RAPAMUNE [Suspect]
     Indication: PROPHYLAXIS AGAINST TRANSPLANT REJECTION
     Dosage: 1 mg, 1x/day
     Route: 048
     Dates: start: 2008, end: 20120927
  2. RAPAMUNE [Suspect]
     Dosage: 1 mg, 1x/day
     Route: 048
  3. LOSARTAN [Concomitant]
     Indication: HYPERTENSION
     Dosage: 100 mg, 1x/day
     Route: 048
     Dates: start: 1996
  4. HYDROCHLOROTHIAZIDE [Concomitant]
     Indication: RENAL TRANSPLANT
     Dosage: 5 mg, 1x/day
     Route: 048
     Dates: start: 2004
  5. MYCOPHENOLATE MOFETIL [Concomitant]
     Indication: RENAL TRANSPLANT
     Dosage: 500 mg, 1x/day
     Route: 048
  6. PREDNISOLONE [Concomitant]
     Indication: RENAL TRANSPLANT
     Dosage: 1 mg, 1x/day
     Route: 048
     Dates: start: 2004
  7. OMEPRAZOLE [Concomitant]
     Dosage: UNK
  8. FOLIC ACID [Concomitant]
     Dosage: UNK

REACTIONS (3)
  - Neoplasm malignant [Recovered/Resolved]
  - Ocular neoplasm [Unknown]
  - Blood cholesterol abnormal [Not Recovered/Not Resolved]
